FAERS Safety Report 11681754 (Version 1)
Quarter: 2015Q4

REPORT INFORMATION
  Report Type: Spontaneous
  Country: US (occurrence: None)
  Receive Date: 20151028
  Receipt Date: 20151028
  Transmission Date: 20160304
  Serious: No
  Sender: FDA-Public Use
  Company Number: None

PATIENT
  Age: 37 Year
  Sex: Female

DRUGS (1)
  1. METHOTREXATE PRESERVATIVE-FREE 50 MG/M2 ML [Suspect]
     Active Substance: METHOTREXATE
     Route: 058

REACTIONS (2)
  - Oedema peripheral [None]
  - Migraine [None]

NARRATIVE: CASE EVENT DATE: 201510
